FAERS Safety Report 23732089 (Version 1)
Quarter: 2024Q2

REPORT INFORMATION
  Report Type: Spontaneous
  Country: US (occurrence: US)
  Receive Date: 20240411
  Receipt Date: 20240411
  Transmission Date: 20240716
  Serious: Yes (Other)
  Sender: FDA-Public Use
  Company Number: US-JNJFOC-20240409107

PATIENT
  Sex: Male

DRUGS (5)
  1. RISPERDAL CONSTA [Suspect]
     Active Substance: RISPERIDONE
     Indication: Schizophrenia
     Route: 030
  2. RISPERDAL CONSTA [Suspect]
     Active Substance: RISPERIDONE
     Route: 030
  3. RISPERDAL CONSTA [Suspect]
     Active Substance: RISPERIDONE
  4. RISPERDAL CONSTA [Suspect]
     Active Substance: RISPERIDONE
  5. CLOZARIL [Suspect]
     Active Substance: CLOZAPINE
     Indication: Schizophrenia
     Route: 065

REACTIONS (11)
  - Hydrocephalus [Unknown]
  - Colloid brain cyst [Unknown]
  - Diabetes mellitus [Unknown]
  - Liver disorder [Unknown]
  - Tachycardia [Unknown]
  - Thyroid neoplasm [Unknown]
  - Anaemia [Unknown]
  - Neutrophil count increased [Unknown]
  - Overdose [Unknown]
  - Nasopharyngitis [Unknown]
  - Off label use [Unknown]
